FAERS Safety Report 5243146-0 (Version None)
Quarter: 2007Q1

REPORT INFORMATION
  Report Type: 
  Country: None (occurrence: None)
  Receive Date: 20070221
  Receipt Date: 20070209
  Transmission Date: 20070707
  Serious: Yes (Hospitalization)
  Sender: FDA-Public Use
  Company Number: IT-PFIZER INC-2007011402

PATIENT
  Sex: Male

DRUGS (3)
  1. SALAZOPYRIN EN [Suspect]
     Indication: PSORIATIC ARTHROPATHY
     Dates: start: 20070103, end: 20070107
  2. DICLOFENAC SODIUM [Suspect]
     Indication: PSORIATIC ARTHROPATHY
     Route: 054
     Dates: start: 20061218, end: 20070107
  3. ACETAMINOPHEN [Suspect]
     Indication: PSORIATIC ARTHROPATHY
     Route: 048
     Dates: start: 20061231, end: 20070107

REACTIONS (1)
  - DRUG RASH WITH EOSINOPHILIA AND SYSTEMIC SYMPTOMS [None]
